FAERS Safety Report 8965909 (Version 1)
Quarter: 2012Q4

REPORT INFORMATION
  Report Type: 
  Country: US (occurrence: US)
  Receive Date: 20121217
  Receipt Date: 20121217
  Transmission Date: 20130627
  Serious: Yes (Hospitalization)
  Sender: FDA-Public Use
  Company Number: US-AMGEN-USASP2012080544

PATIENT
  Age: 63 Year
  Sex: Male

DRUGS (2)
  1. ENBREL [Suspect]
     Indication: ANKYLOSING SPONDYLITIS
     Dosage: 50 mg, qwk
     Dates: start: 20070301
  2. CELEXA                             /00582602/ [Concomitant]
     Dosage: UNK

REACTIONS (4)
  - Fall [Recovered/Resolved]
  - Pain [Recovered/Resolved]
  - Frustration [Not Recovered/Not Resolved]
  - Anger [Not Recovered/Not Resolved]
